FAERS Safety Report 16355227 (Version 1)
Quarter: 2019Q2

REPORT INFORMATION
  Report Type: Spontaneous
  Country: CH (occurrence: CH)
  Receive Date: 20190525
  Receipt Date: 20190525
  Transmission Date: 20190711
  Serious: Yes (Life-Threatening, Hospitalization)
  Sender: FDA-Public Use
  Company Number: CH-ROCHE-2323901

PATIENT
  Age: 41 Year
  Sex: Male

DRUGS (5)
  1. RIVOTRIL [Suspect]
     Active Substance: CLONAZEPAM
     Indication: SUICIDE ATTEMPT
     Route: 048
     Dates: end: 20190107
  2. RIVOTRIL [Suspect]
     Active Substance: CLONAZEPAM
     Dosage: IN TOTAL
     Route: 048
     Dates: start: 20190107, end: 20190107
  3. PROPOFOL. [Suspect]
     Active Substance: PROPOFOL
     Indication: PRODUCT USED FOR UNKNOWN INDICATION
     Route: 065
     Dates: start: 20190107, end: 20190107
  4. TRAMAL RETARD [Suspect]
     Active Substance: TRAMADOL
     Indication: SUICIDE ATTEMPT
     Route: 048
     Dates: end: 20190107
  5. TRAMAL RETARD [Suspect]
     Active Substance: TRAMADOL
     Dosage: IN TOTAL
     Route: 048
     Dates: start: 20190107, end: 20190107

REACTIONS (2)
  - Loss of consciousness [Recovered/Resolved]
  - Intentional overdose [Unknown]

NARRATIVE: CASE EVENT DATE: 20190107
